FAERS Safety Report 7352629-9 (Version None)
Quarter: 2011Q1

REPORT INFORMATION
  Report Type: 
  Country: None (occurrence: None)
  Receive Date: 20110301
  Receipt Date: 20100106
  Transmission Date: 20110831
  Serious: Yes (Other)
  Sender: FDA-Public Use
  Company Number: RB-00214-2010

PATIENT
  Age: 56 Year
  Sex: Male

DRUGS (1)
  1. SUBOXONE [Suspect]
     Indication: DRUG DEPENDENCE
     Dosage: (8 MG TABLET/ TOOK 64 MG X 1 DOSE SUBLINGUAL)
     Route: 060
     Dates: start: 20091201, end: 20091201

REACTIONS (2)
  - OVERDOSE [None]
  - DRUG WITHDRAWAL SYNDROME [None]
